FAERS Safety Report 23543931 (Version 2)
Quarter: 2024Q1

REPORT INFORMATION
  Report Type: Spontaneous
  Country: GB (occurrence: GB)
  Receive Date: 20240220
  Receipt Date: 20240322
  Transmission Date: 20240410
  Serious: Yes (Other)
  Sender: FDA-Public Use
  Company Number: GB-TAKEDA-2024TUS013888

PATIENT
  Age: 50 Year
  Sex: Female

DRUGS (3)
  1. ENTYVIO [Suspect]
     Active Substance: VEDOLIZUMAB
     Indication: Crohn^s disease
     Dosage: UNK
     Route: 065
     Dates: start: 202002
  2. BETAHISTINE [Concomitant]
     Active Substance: BETAHISTINE
     Indication: Meniere^s disease
     Dosage: 16 MILLIGRAM, TID
  3. ALVERINE [Concomitant]
     Active Substance: ALVERINE
     Dosage: UNK

REACTIONS (8)
  - Meniere^s disease [Unknown]
  - Narrow anterior chamber angle [Unknown]
  - Photopsia [Unknown]
  - Disorientation [Unknown]
  - Photophobia [Unknown]
  - Nervousness [Unknown]
  - Fatigue [Unknown]
  - Headache [Unknown]
